FAERS Safety Report 8244766-1 (Version None)
Quarter: 2012Q1

REPORT INFORMATION
  Report Type: 
  Country: None (occurrence: None)
  Receive Date: 20120329
  Receipt Date: 20110324
  Transmission Date: 20120608
  Serious: No
  Sender: FDA-Public Use
  Company Number: US-MYLANLABS-2011S1006390

PATIENT
  Age: 49 Year
  Sex: Male

DRUGS (7)
  1. DILANTIN [Concomitant]
     Indication: CONVULSION
  2. FENTANYL-100 [Suspect]
     Indication: BACK PAIN
     Dosage: CHANGED Q72H
     Route: 062
  3. FOLIC ACID [Concomitant]
  4. CELEBREX [Concomitant]
  5. FLUOXETINE [Concomitant]
     Indication: DEPRESSION
  6. NORCO [Concomitant]
  7. CLONAZEPAM [Concomitant]
     Indication: ANXIETY

REACTIONS (1)
  - DRUG SCREEN FALSE POSITIVE [None]
